FAERS Safety Report 7906983-7 (Version None)
Quarter: 2011Q4

REPORT INFORMATION
  Report Type: 
  Country: None (occurrence: None)
  Receive Date: 20111109
  Receipt Date: 20111109
  Transmission Date: 20120403
  Serious: Yes (Hospitalization)
  Sender: FDA-Public Use
  Company Number: None

PATIENT
  Age: 72 Year
  Sex: Male
  Weight: 59.5 kg

DRUGS (1)
  1. ARSENIC TRIOXIDE [Suspect]
     Indication: LUNG NEOPLASM MALIGNANT
     Dosage: 15MG TWICE A WK IV
     Route: 042
     Dates: start: 20110908, end: 20111001

REACTIONS (1)
  - HERPES ZOSTER [None]
